FAERS Safety Report 8225111-4 (Version None)
Quarter: 2012Q1

REPORT INFORMATION
  Report Type: 
  Country: None (occurrence: None)
  Receive Date: 20120321
  Receipt Date: 20120312
  Transmission Date: 20120608
  Serious: Yes (Other)
  Sender: FDA-Public Use
  Company Number: US-JNJFOC-20120306840

PATIENT
  Sex: Female
  Weight: 90.72 kg

DRUGS (7)
  1. FOLIC ACID [Suspect]
     Indication: PRODUCT USED FOR UNKNOWN INDICATION
     Route: 065
     Dates: start: 20111001
  2. WARFARIN SODIUM [Concomitant]
     Indication: THROMBOSIS PROPHYLAXIS
     Route: 048
     Dates: start: 20110201
  3. METHOTREXATE [Concomitant]
     Indication: ARTHRITIS
     Route: 048
     Dates: start: 20110701
  4. DESOXYN [Concomitant]
     Indication: NARCOLEPSY
     Dosage: 3-4 TIMES A DAY
     Route: 048
     Dates: start: 20100101
  5. FERREX FORTE [Concomitant]
     Indication: BLOOD COUNT
     Route: 048
     Dates: start: 20100101
  6. SIMVASTATIN [Concomitant]
     Indication: BLOOD CHOLESTEROL
     Route: 048
     Dates: start: 20080101
  7. REMICADE [Suspect]
     Indication: RHEUMATOID ARTHRITIS
     Route: 042
     Dates: start: 20111001

REACTIONS (8)
  - DIZZINESS [None]
  - NARCOLEPSY [None]
  - SOMNOLENCE [None]
  - SUICIDAL IDEATION [None]
  - PAIN [None]
  - DEPRESSION [None]
  - IMPAIRED DRIVING ABILITY [None]
  - DRUG INEFFECTIVE [None]
